FAERS Safety Report 25980724 (Version 2)
Quarter: 2025Q4

REPORT INFORMATION
  Report Type: Report from Study
  Country: US (occurrence: US)
  Receive Date: 20251030
  Receipt Date: 20251226
  Transmission Date: 20260118
  Serious: Yes (Other)
  Sender: NOVARTIS
  Company Number: US-002147023-NVSC2025US164914

PATIENT
  Sex: Male
  Weight: 104.31 kg

DRUGS (2)
  1. COSENTYX [Suspect]
     Active Substance: SECUKINUMAB
     Indication: Hidradenitis
     Dosage: 300 MG, QMO
     Route: 058
     Dates: start: 202412
  2. COSENTYX [Suspect]
     Active Substance: SECUKINUMAB
     Dosage: UNK (INCREASED DOSAGE TO 2X PER MONTH)
     Route: 065

REACTIONS (5)
  - Hidradenitis [Unknown]
  - Condition aggravated [Unknown]
  - Pain [Recovering/Resolving]
  - Gait disturbance [Recovering/Resolving]
  - Movement disorder [Recovering/Resolving]
